FAERS Safety Report 15225521 (Version 2)
Quarter: 2018Q4

REPORT INFORMATION
  Report Type: Spontaneous
  Country: FR (occurrence: FR)
  Receive Date: 20180801
  Receipt Date: 20180902
  Transmission Date: 20190204
  Serious: Yes (Hospitalization, Other)
  Sender: FDA-Public Use
  Company Number: FR-ALVOGEN-2018-ALVOGEN-096939

PATIENT
  Sex: Female

DRUGS (3)
  1. ICAZ [Concomitant]
     Active Substance: ISRADIPINE
     Indication: HYPERTENSION
     Route: 065
     Dates: start: 1990
  2. FLUDEX (INDAPAMIDE) [Suspect]
     Active Substance: INDAPAMIDE
     Indication: HYPERTENSION
     Route: 048
     Dates: start: 1990, end: 20180704
  3. LISINOPRIL. [Suspect]
     Active Substance: LISINOPRIL
     Indication: HYPERTENSION
     Route: 048
     Dates: start: 1990

REACTIONS (2)
  - Haemorrhagic stroke [Recovered/Resolved]
  - Myelodysplastic syndrome [Not Recovered/Not Resolved]

NARRATIVE: CASE EVENT DATE: 1992
